FAERS Safety Report 17049875 (Version 1)
Quarter: 2019Q4

REPORT INFORMATION
  Report Type: Spontaneous
  Country: GB (occurrence: GB)
  Receive Date: 20191119
  Receipt Date: 20191119
  Transmission Date: 20200122
  Serious: Yes (Other)
  Sender: FDA-Public Use
  Company Number: GB-PFIZER INC-2019497535

PATIENT
  Age: 71 Year
  Sex: Male
  Weight: 83 kg

DRUGS (7)
  1. BISOPROLOL FUMARATE. [Concomitant]
     Active Substance: BISOPROLOL FUMARATE
     Dosage: UNK
  2. HUMULIN M3 [Concomitant]
     Active Substance: INSULIN HUMAN
     Dosage: UNK
  3. FELODIPINE. [Concomitant]
     Active Substance: FELODIPINE
     Dosage: UNK
  4. SPIRONOLACTONE. [Suspect]
     Active Substance: SPIRONOLACTONE
     Indication: HYPERTENSION
     Dosage: 25 MG, UNK (4TH LINE AGENT)
     Route: 048
     Dates: start: 20181012, end: 20181031
  5. LISINOPRIL DIHYDRATE [Concomitant]
     Active Substance: LISINOPRIL
     Dosage: UNK
  6. ATORVASTATIN CALCIUM. [Concomitant]
     Active Substance: ATORVASTATIN CALCIUM
     Dosage: UNK
  7. METFORMIN HYDROCHLORIDE. [Concomitant]
     Active Substance: METFORMIN HYDROCHLORIDE
     Dosage: UNK

REACTIONS (1)
  - Diabetes mellitus inadequate control [Recovered/Resolved]

NARRATIVE: CASE EVENT DATE: 20181015
